FAERS Safety Report 22218955 (Version 2)
Quarter: 2023Q2

REPORT INFORMATION
  Report Type: Spontaneous
  Country: IT (occurrence: IT)
  Receive Date: 20230417
  Receipt Date: 20230523
  Transmission Date: 20230722
  Serious: No
  Sender: FDA-Public Use
  Company Number: IT-PFIZER INC-PV202300064702

PATIENT
  Sex: Female

DRUGS (1)
  1. FILGRASTIM [Suspect]
     Active Substance: FILGRASTIM
     Dosage: UNK

REACTIONS (5)
  - Device issue [Unknown]
  - Device safety feature issue [Unknown]
  - Device operational issue [Unknown]
  - Device breakage [Unknown]
  - Device use error [Unknown]
